FAERS Safety Report 22255552 (Version 2)
Quarter: 2023Q2

REPORT INFORMATION
  Report Type: Spontaneous
  Country: PT (occurrence: PT)
  Receive Date: 20230426
  Receipt Date: 20230504
  Transmission Date: 20230722
  Serious: Yes (Other)
  Sender: FDA-Public Use
  Company Number: PT-ROCHE-3329125

PATIENT
  Age: 69 Year
  Sex: Female

DRUGS (49)
  1. GEMCITABINE HYDROCHLORIDE [Suspect]
     Active Substance: GEMCITABINE HYDROCHLORIDE
     Indication: Product used for unknown indication
     Dosage: 1000 MG/M2, EVERY TWO WEEKS
     Route: 065
     Dates: start: 2009, end: 2010
  2. GEMCITABINE HYDROCHLORIDE [Suspect]
     Active Substance: GEMCITABINE HYDROCHLORIDE
     Dosage: 1000 MG/M2, EVERY TWO WEEKS
     Route: 065
     Dates: start: 201304, end: 201305
  3. GEMCITABINE HYDROCHLORIDE [Suspect]
     Active Substance: GEMCITABINE HYDROCHLORIDE
     Dosage: 1000 MG/M2, EVERY TWO WEEKS
     Route: 065
     Dates: start: 201607, end: 201608
  4. GEMCITABINE HYDROCHLORIDE [Suspect]
     Active Substance: GEMCITABINE HYDROCHLORIDE
     Dosage: 1000 MG, EVERY TWO WEEKS
     Route: 065
     Dates: start: 20190601, end: 20191020
  5. GEMCITABINE HYDROCHLORIDE [Suspect]
     Active Substance: GEMCITABINE HYDROCHLORIDE
     Dosage: 1000 MG/M2, EVERY TWO WEEKS
     Route: 065
     Dates: start: 202011, end: 202102
  6. GEMCITABINE HYDROCHLORIDE [Suspect]
     Active Substance: GEMCITABINE HYDROCHLORIDE
     Dosage: 1000 MG, EVERY TWO WEEKS
     Route: 065
     Dates: start: 20221101, end: 20230220
  7. CYCLOPHOSPHAMIDE [Suspect]
     Active Substance: CYCLOPHOSPHAMIDE
     Indication: Product used for unknown indication
     Dosage: UNK, UNKNOWN
     Route: 065
     Dates: start: 2009, end: 2010
  8. CYCLOPHOSPHAMIDE [Suspect]
     Active Substance: CYCLOPHOSPHAMIDE
     Dosage: UNK, UNKNOWN
     Route: 065
     Dates: start: 201304, end: 201305
  9. CYCLOPHOSPHAMIDE [Suspect]
     Active Substance: CYCLOPHOSPHAMIDE
     Dosage: UNK, UNKNOWN
     Route: 065
     Dates: start: 201607, end: 201608
  10. CYCLOPHOSPHAMIDE [Suspect]
     Active Substance: CYCLOPHOSPHAMIDE
     Dosage: UNK, UNKNOWN
     Route: 065
     Dates: start: 20190601, end: 20191020
  11. CYCLOPHOSPHAMIDE [Suspect]
     Active Substance: CYCLOPHOSPHAMIDE
     Dosage: UNK, UNKNOWN
     Route: 065
     Dates: start: 202011, end: 202102
  12. CYCLOPHOSPHAMIDE [Suspect]
     Active Substance: CYCLOPHOSPHAMIDE
     Dosage: UNK, UNKNOWN
     Route: 065
     Dates: start: 20221101, end: 20230220
  13. OXALIPLATIN [Suspect]
     Active Substance: OXALIPLATIN
     Indication: Product used for unknown indication
     Dosage: 100 MG/M2, EVERY TWO WEEKS
     Route: 065
     Dates: start: 2009, end: 2010
  14. OXALIPLATIN [Suspect]
     Active Substance: OXALIPLATIN
     Dosage: 100 MG/M2, EVERY TWO WEEKS
     Route: 065
     Dates: start: 201304, end: 201305
  15. OXALIPLATIN [Suspect]
     Active Substance: OXALIPLATIN
     Dosage: 100 MG/M2, EVERY TWO WEEKS
     Route: 065
     Dates: start: 201607, end: 201608
  16. OXALIPLATIN [Suspect]
     Active Substance: OXALIPLATIN
     Dosage: 100 MG/M2, EVERY TWO WEEKS
     Route: 065
     Dates: start: 20190601, end: 20191020
  17. OXALIPLATIN [Suspect]
     Active Substance: OXALIPLATIN
     Dosage: 100 MG/M2, EVERY TWO WEEKS
     Route: 065
     Dates: start: 202011, end: 202102
  18. OXALIPLATIN [Suspect]
     Active Substance: OXALIPLATIN
     Dosage: 100 MG/M2, EVERY TWO WEEKS
     Route: 065
     Dates: start: 20221101, end: 20230220
  19. PREDNISONE [Suspect]
     Active Substance: PREDNISONE
     Indication: Product used for unknown indication
     Dosage: UNK UNK, UNKNOWN
     Route: 065
     Dates: start: 2009, end: 2010
  20. PREDNISONE [Suspect]
     Active Substance: PREDNISONE
     Dosage: UNK, UNKNOWN
     Route: 065
     Dates: start: 201304, end: 201305
  21. PREDNISONE [Suspect]
     Active Substance: PREDNISONE
     Dosage: UNK, UNKNOWN
     Route: 065
     Dates: start: 201607, end: 201608
  22. PREDNISONE [Suspect]
     Active Substance: PREDNISONE
     Dosage: UNK, UNKNOWN
     Route: 065
     Dates: start: 20190601, end: 20191020
  23. PREDNISONE [Suspect]
     Active Substance: PREDNISONE
     Dosage: UNK, UNKNOWN
     Route: 065
     Dates: start: 202011, end: 202102
  24. PREDNISONE [Suspect]
     Active Substance: PREDNISONE
     Dosage: UNK, UNKNOWN
     Route: 065
     Dates: start: 20221101, end: 20230220
  25. DOXORUBICIN [Suspect]
     Active Substance: DOXORUBICIN
     Indication: Product used for unknown indication
     Dosage: UNK, UNKNOWN
     Route: 065
     Dates: start: 2009, end: 2010
  26. DOXORUBICIN [Suspect]
     Active Substance: DOXORUBICIN
     Dosage: UNK, UNKNOWN
     Route: 065
     Dates: start: 201304, end: 201305
  27. DOXORUBICIN [Suspect]
     Active Substance: DOXORUBICIN
     Dosage: UNK, UNKNOWN
     Route: 065
     Dates: start: 201607, end: 201608
  28. DOXORUBICIN [Suspect]
     Active Substance: DOXORUBICIN
     Dosage: UNK, UNKNOWN
     Route: 065
     Dates: start: 20190601, end: 20191020
  29. DOXORUBICIN [Suspect]
     Active Substance: DOXORUBICIN
     Dosage: UNK, UNKNOWN
     Route: 065
     Dates: start: 202011, end: 202102
  30. DOXORUBICIN [Suspect]
     Active Substance: DOXORUBICIN
     Dosage: UNK, UNKNOWN
     Route: 065
     Dates: start: 20221101, end: 20230220
  31. BENDAMUSTINE [Suspect]
     Active Substance: BENDAMUSTINE
     Indication: Product used for unknown indication
     Dosage: UNK, UNKNOWN
     Route: 065
     Dates: start: 2009, end: 2010
  32. BENDAMUSTINE [Suspect]
     Active Substance: BENDAMUSTINE
     Dosage: UNK, UNKNOWN
     Route: 065
     Dates: start: 201304, end: 201305
  33. BENDAMUSTINE [Suspect]
     Active Substance: BENDAMUSTINE
     Dosage: UNK, UNKNOWN
     Route: 065
     Dates: start: 201607, end: 201608
  34. BENDAMUSTINE [Suspect]
     Active Substance: BENDAMUSTINE
     Dosage: UNK UNK, UNKNOWN
     Route: 065
     Dates: start: 20190601, end: 20191020
  35. BENDAMUSTINE [Suspect]
     Active Substance: BENDAMUSTINE
     Dosage: UNK, UNKNOWN
     Route: 065
     Dates: start: 202011, end: 202102
  36. BENDAMUSTINE [Suspect]
     Active Substance: BENDAMUSTINE
     Dosage: UNK, UNKNOWN
     Route: 065
     Dates: start: 20221101, end: 20230220
  37. BENDAMUSTINE [Suspect]
     Active Substance: BENDAMUSTINE
     Dosage: UNK
  38. VINCRISTINE [Suspect]
     Active Substance: VINCRISTINE
     Indication: Product used for unknown indication
     Dosage: UNK UNK, UNKNOWN
     Route: 065
     Dates: start: 2009, end: 2010
  39. VINCRISTINE [Suspect]
     Active Substance: VINCRISTINE
     Dosage: UNK, UNKNOWN
     Route: 065
     Dates: start: 201304, end: 201305
  40. VINCRISTINE [Suspect]
     Active Substance: VINCRISTINE
     Dosage: UNK UNK, UNKNOWN
     Route: 065
     Dates: start: 201607, end: 201608
  41. VINCRISTINE [Suspect]
     Active Substance: VINCRISTINE
     Dosage: UNK, UNKNOWN
     Route: 065
     Dates: start: 20190601, end: 20191020
  42. VINCRISTINE [Suspect]
     Active Substance: VINCRISTINE
     Dosage: UNK, UNKNOWN
     Route: 065
     Dates: start: 202011, end: 202102
  43. VINCRISTINE [Suspect]
     Active Substance: VINCRISTINE
     Dosage: UNK, UNKNOWN
     Route: 065
     Dates: start: 20221101, end: 20230220
  44. RITUXIMAB [Suspect]
     Active Substance: RITUXIMAB
     Indication: Product used for unknown indication
     Dosage: UNK, UNKNOWN
     Route: 065
     Dates: start: 2009, end: 2010
  45. RITUXIMAB [Suspect]
     Active Substance: RITUXIMAB
     Dosage: UNK UNK, UNKNOWN
     Route: 065
     Dates: start: 201304, end: 201305
  46. RITUXIMAB [Suspect]
     Active Substance: RITUXIMAB
     Dosage: UNK, UNKNOWN
     Route: 065
     Dates: start: 201607, end: 201608
  47. RITUXIMAB [Suspect]
     Active Substance: RITUXIMAB
     Dosage: UNK, UNKNOWN
     Route: 065
     Dates: start: 20190601, end: 20191020
  48. RITUXIMAB [Suspect]
     Active Substance: RITUXIMAB
     Dosage: UNK, UNKNOWN
     Route: 065
     Dates: start: 202011, end: 202102
  49. RITUXIMAB [Suspect]
     Active Substance: RITUXIMAB
     Dosage: UNK, UNKNOWN
     Route: 065
     Dates: start: 20221101, end: 20230220

REACTIONS (5)
  - Lymphoma [Unknown]
  - Neoplasm malignant [Unknown]
  - Metastasis [Unknown]
  - Splenic marginal zone lymphoma [Unknown]
  - Impaired work ability [Unknown]
